FAERS Safety Report 24529197 (Version 7)
Quarter: 2025Q3

REPORT INFORMATION
  Report Type: Report from Study
  Country: JP (occurrence: JP)
  Receive Date: 20241021
  Receipt Date: 20250803
  Transmission Date: 20251021
  Serious: Yes (Hospitalization, Other)
  Sender: ALEXION PHARMACEUTICALS
  Company Number: JP-AstraZeneca-CH-00726821A

PATIENT
  Age: 85 Year
  Sex: Male

DRUGS (4)
  1. DANICOPAN [Suspect]
     Active Substance: DANICOPAN
     Indication: Paroxysmal nocturnal haemoglobinuria
     Dosage: 150 MILLIGRAM, TID
     Dates: start: 202403, end: 20241006
  2. DANICOPAN [Suspect]
     Active Substance: DANICOPAN
     Dosage: 150 MILLIGRAM, TID
     Dates: start: 20241009
  3. ULTOMIRIS [Suspect]
     Active Substance: RAVULIZUMAB-CWVZ
     Indication: Paroxysmal nocturnal haemoglobinuria
  4. ULTOMIRIS [Suspect]
     Active Substance: RAVULIZUMAB-CWVZ
     Dosage: 3000 MILLIGRAM, Q8W

REACTIONS (2)
  - Pneumonia [Recovered/Resolved]
  - Haemolysis [Recovering/Resolving]

NARRATIVE: CASE EVENT DATE: 20241001
